FAERS Safety Report 21958080 (Version 1)
Quarter: 2023Q1

REPORT INFORMATION
  Report Type: Spontaneous
  Country: US (occurrence: None)
  Receive Date: 20230203
  Receipt Date: 20230203
  Transmission Date: 20230417
  Serious: Yes (Hospitalization, Other)
  Sender: FDA-Public Use
  Company Number: None

PATIENT
  Sex: Male

DRUGS (1)
  1. ABIRATERONE [Suspect]
     Active Substance: ABIRATERONE
     Dosage: FREQUENCY : DAILY;?
     Route: 048

REACTIONS (8)
  - Pulmonary thrombosis [None]
  - Pneumonia [None]
  - COVID-19 [None]
  - Cancer fatigue [None]
  - Hot flush [None]
  - Muscle atrophy [None]
  - Muscular weakness [None]
  - Chest pain [None]
